FAERS Safety Report 5802720-0 (Version None)
Quarter: 2008Q3

REPORT INFORMATION
  Report Type: 
  Country: None (occurrence: None)
  Receive Date: 20080708
  Receipt Date: 20080627
  Transmission Date: 20090109
  Serious: Yes (Other)
  Sender: FDA-Public Use
  Company Number: AU-AMGEN-QUU291020

PATIENT
  Age: 70 Year
  Sex: Female

DRUGS (4)
  1. NEULASTA [Suspect]
     Indication: CHEMOTHERAPY
     Route: 065
     Dates: start: 20080612
  2. FLUOROURACIL [Concomitant]
  3. EPIRUBICIN [Concomitant]
  4. CYCLOPHOSPHAMIDE [Concomitant]

REACTIONS (1)
  - FEBRILE NEUTROPENIA [None]
